FAERS Safety Report 23210291 (Version 1)
Quarter: 2023Q4

REPORT INFORMATION
  Report Type: Spontaneous
  Country: US (occurrence: US)
  Receive Date: 20231121
  Receipt Date: 20231121
  Transmission Date: 20240109
  Serious: No
  Sender: FDA-Public Use
  Company Number: US-ASTELLAS-2023US034203

PATIENT
  Sex: Female

DRUGS (2)
  1. VEOZAH [Suspect]
     Active Substance: FEZOLINETANT
     Indication: Hot flush
     Dosage: UNK UNK, UNKNOWN FREQ.
     Route: 048
  2. VEOZAH [Suspect]
     Active Substance: FEZOLINETANT
     Dosage: 0.5 DF, ONCE DAILY (HALF THE RECOMMENDED DOSE DAILY)
     Route: 048

REACTIONS (2)
  - Insomnia [Recovered/Resolved]
  - Wrong technique in product usage process [Not Recovered/Not Resolved]
